FAERS Safety Report 11593645 (Version 1)
Quarter: 2015Q4

REPORT INFORMATION
  Report Type: Spontaneous
  Country: US (occurrence: None)
  Receive Date: 20151002
  Receipt Date: 20151002
  Transmission Date: 20160304
  Serious: Yes (Hospitalization)
  Sender: FDA-Public Use
  Company Number: None

PATIENT
  Age: 50 Year
  Sex: Male
  Weight: 58.2 kg

DRUGS (1)
  1. CISPLATIN. [Suspect]
     Active Substance: CISPLATIN
     Dates: end: 20150915

REACTIONS (5)
  - Pneumonia aspiration [None]
  - Pyrexia [None]
  - Sepsis [None]
  - White blood cell count decreased [None]
  - Heart rate increased [None]

NARRATIVE: CASE EVENT DATE: 20150918
